FAERS Safety Report 5405528-3 (Version None)
Quarter: 2007Q3

REPORT INFORMATION
  Report Type: 
  Country: None (occurrence: None)
  Receive Date: 20070803
  Receipt Date: 20070727
  Transmission Date: 20080115
  Serious: Yes (Other)
  Sender: FDA-Public Use
  Company Number: JP-MERCK-0707USA01564

PATIENT
  Sex: Male

DRUGS (6)
  1. PEPCID RPD [Suspect]
     Route: 048
  2. PRIMPERAN INJ [Suspect]
     Route: 048
  3. [THERAPY UNSPECIFIED] [Concomitant]
     Route: 065
  4. MARZULENE-S [Concomitant]
     Route: 065
  5. LOXONIN [Concomitant]
     Route: 065
  6. TERNELIN [Suspect]
     Route: 065

REACTIONS (1)
  - INAPPROPRIATE ANTIDIURETIC HORMONE SECRETION [None]
